FAERS Safety Report 22231080 (Version 1)
Quarter: 2023Q2

REPORT INFORMATION
  Report Type: Spontaneous
  Country: US (occurrence: None)
  Receive Date: 20230420
  Receipt Date: 20230420
  Transmission Date: 20230721
  Serious: No
  Sender: FDA-Public Use
  Company Number: US-ROCHE-3126917

PATIENT
  Sex: Female
  Weight: 116.22 kg

DRUGS (4)
  1. KADCYLA [Suspect]
     Active Substance: ADO-TRASTUZUMAB EMTANSINE
     Indication: Breast cancer metastatic
     Dosage: FEQUENCY 1 AND FREQUENCY TIME 3 ONGOING NO
     Route: 042
     Dates: start: 2015, end: 20220615
  2. ZYRTEC [Concomitant]
     Active Substance: CETIRIZINE HYDROCHLORIDE
     Indication: Hypersensitivity
     Route: 048
  3. BLOOD PRESSURE MEDICATION (UNK INGREDIENTS) [Concomitant]
  4. FIORICET [Concomitant]
     Active Substance: ACETAMINOPHEN\BUTALBITAL\CAFFEINE
     Indication: Migraine
     Route: 048
     Dates: start: 2020

REACTIONS (6)
  - Gait disturbance [Not Recovered/Not Resolved]
  - Fall [Not Recovered/Not Resolved]
  - Areflexia [Not Recovered/Not Resolved]
  - Neuropathy peripheral [Not Recovered/Not Resolved]
  - Weight increased [Not Recovered/Not Resolved]
  - Hypertension [Not Recovered/Not Resolved]

NARRATIVE: CASE EVENT DATE: 20200101
